FAERS Safety Report 24234066 (Version 2)
Quarter: 2024Q4

REPORT INFORMATION
  Report Type: Report from Study
  Country: US (occurrence: US)
  Receive Date: 20240821
  Receipt Date: 20241016
  Transmission Date: 20250115
  Serious: Yes (Other)
  Sender: ABBVIE
  Company Number: US-ABBVIE-5675659

PATIENT
  Age: 66 Year
  Sex: Female

DRUGS (2)
  1. HUMIRA [Suspect]
     Active Substance: ADALIMUMAB
     Indication: Crohn^s disease
     Dosage: FORM STRENGTH: 40 MILLIGRAMS, CITRATE FREE,
     Route: 058
     Dates: start: 20210720, end: 202407
  2. HUMIRA [Suspect]
     Active Substance: ADALIMUMAB
     Dosage: FORM STRENGTH: 40 MILLIGRAMS, CITRATE FREE,
     Route: 058
     Dates: start: 2024

REACTIONS (3)
  - Kidney infection [Recovering/Resolving]
  - Nephrolithiasis [Recovering/Resolving]
  - Malaise [Recovered/Resolved]

NARRATIVE: CASE EVENT DATE: 20240215
